FAERS Safety Report 25864681 (Version 1)
Quarter: 2025Q3

REPORT INFORMATION
  Report Type: Spontaneous
  Country: US (occurrence: None)
  Receive Date: 20250929
  Receipt Date: 20250929
  Transmission Date: 20251020
  Serious: Yes (Hospitalization)
  Sender: FDA-CTU
  Company Number: None

PATIENT
  Age: 27 Year
  Sex: Female
  Weight: 73.9 kg

DRUGS (1)
  1. FENTANYL\ROPIVACAINE [Suspect]
     Active Substance: FENTANYL\ROPIVACAINE
     Indication: Pain management
     Route: 008
     Dates: start: 20250915, end: 20250915

REACTIONS (2)
  - Drug ineffective [None]
  - Inadequate analgesia [None]

NARRATIVE: CASE EVENT DATE: 20250915
